FAERS Safety Report 8542590-3 (Version None)
Quarter: 2012Q3

REPORT INFORMATION
  Report Type: 
  Country: None (occurrence: None)
  Receive Date: 20120726
  Receipt Date: 20120705
  Transmission Date: 20120928
  Serious: No
  Sender: FDA-Public Use
  Company Number: US-009507513-1207USA004098

PATIENT

DRUGS (1)
  1. TRUSOPT [Suspect]

REACTIONS (3)
  - LIQUID PRODUCT PHYSICAL ISSUE [None]
  - EYE PAIN [None]
  - PHOTOPHOBIA [None]
